FAERS Safety Report 11301490 (Version 1)
Quarter: 2015Q3

REPORT INFORMATION
  Report Type: Spontaneous
  Country: US (occurrence: US)
  Receive Date: 20150722
  Receipt Date: 20150722
  Transmission Date: 20151125
  Serious: No
  Sender: FDA-Public Use
  Company Number: US-ELI_LILLY_AND_COMPANY-US200909004563

PATIENT
  Sex: Female

DRUGS (5)
  1. VITAMIN D [Concomitant]
     Active Substance: CHOLECALCIFEROL
     Dosage: 50000 U, DAILY (1/D)
  2. ARMOUR THYROID [Concomitant]
     Active Substance: THYROID, PORCINE\THYROID, UNSPECIFIED
     Dosage: UNK, UNKNOWN
  3. HUMATROPE [Suspect]
     Active Substance: SOMATROPIN
     Dosage: UNK, UNKNOWN
     Dates: end: 20090915
  4. ESTROGENS [Concomitant]
     Active Substance: ESTROGENS
     Dosage: UNK, UNKNOWN
  5. PROGESTERONE. [Concomitant]
     Active Substance: PROGESTERONE
     Dosage: UNK, UNKNOWN

REACTIONS (4)
  - Micturition urgency [Not Recovered/Not Resolved]
  - Pollakiuria [Recovering/Resolving]
  - Poor quality drug administered [Recovered/Resolved]
  - Oedema peripheral [Recovering/Resolving]

NARRATIVE: CASE EVENT DATE: 200909
